FAERS Safety Report 4286141-0 (Version None)
Quarter: 2004Q1

REPORT INFORMATION
  Report Type: 
  Country: None (occurrence: None)
  Receive Date: 20040114
  Receipt Date: 20030903
  Transmission Date: 20041129
  Serious: Yes (Hospitalization)
  Sender: FDA-Public Use
  Company Number: A03200302022

PATIENT
  Age: 46 Year
  Sex: Female
  Weight: 58.9676 kg

DRUGS (7)
  1. DEMEROL [Suspect]
     Indication: PAIN
     Dates: start: 20030601, end: 20030723
  2. BETASERON [Suspect]
     Indication: MULTIPLE SCLEROSIS
     Dates: start: 20030605
  3. PROZAC [Concomitant]
  4. CELEXA [Concomitant]
  5. CLIMARA [Concomitant]
  6. MOTRIN [Concomitant]
  7. RESTORIL [Concomitant]

REACTIONS (4)
  - CONVULSION [None]
  - HAEMORRHOIDS [None]
  - HYPOTHYROIDISM [None]
  - MULTIPLE SCLEROSIS [None]
